FAERS Safety Report 13875923 (Version 5)
Quarter: 2018Q3

REPORT INFORMATION
  Report Type: Spontaneous
  Country: GB (occurrence: GB)
  Receive Date: 20170817
  Receipt Date: 20180726
  Transmission Date: 20181010
  Serious: Yes (Life-Threatening, Hospitalization, Other)
  Sender: FDA-Public Use
  Company Number: GB-AUROBINDO-AUR-APL-2017-38677

PATIENT
  Age: 19 Year
  Sex: Female

DRUGS (12)
  1. RANITIDINE TABLETS 300MG [Suspect]
     Active Substance: RANITIDINE
     Indication: FOOD INTOLERANCE
     Dosage: 1 DOSAGE FORM
     Route: 065
     Dates: start: 20150423
  2. ONDANSETRON [Concomitant]
     Active Substance: ONDANSETRON
     Indication: PRODUCT USED FOR UNKNOWN INDICATION
     Dosage: 1 DOSAGE FORM, PRN
     Dates: end: 201504
  3. OMEPRAZOLE. [Concomitant]
     Active Substance: OMEPRAZOLE
     Dosage: 2 DOSAGE FORM, ONCE A DAY
     Route: 065
  4. RANITIDINE TABLETS 300MG [Suspect]
     Active Substance: RANITIDINE
     Dosage: 300 MILLIGRAM, ONCE A DAY
     Route: 065
     Dates: start: 20150425, end: 20150425
  5. CETIRIZINE [Concomitant]
     Active Substance: CETIRIZINE HYDROCHLORIDE
     Indication: FOOD INTOLERANCE
     Dosage: 10 MILLIGRAM
  6. CETIRIZINE [Concomitant]
     Active Substance: CETIRIZINE HYDROCHLORIDE
     Indication: GASTRIC DISORDER
     Dosage: 1 DOSAGE FORM, ONCE A DAY
     Route: 065
  7. SODIUM [Concomitant]
     Active Substance: SODIUM
     Indication: PRODUCT USED FOR UNKNOWN INDICATION
     Dosage: 600 MILLIGRAM
  8. RANITIDINE TABLETS 300MG [Suspect]
     Active Substance: RANITIDINE
     Indication: GASTRIC DISORDER
     Dosage: 300 MILLIGRAM, ONCE A DAY
     Route: 065
     Dates: start: 20150424, end: 20150424
  9. OMEPRAZOLE. [Concomitant]
     Active Substance: OMEPRAZOLE
     Indication: PRODUCT USED FOR UNKNOWN INDICATION
     Dosage: 10 MILLIGRAM
     Route: 065
  10. PARACETAMOL [Concomitant]
     Active Substance: ACETAMINOPHEN
     Indication: PRODUCT USED FOR UNKNOWN INDICATION
     Dosage: 500 MILLIGRAM, PRN
     Route: 065
     Dates: end: 201504
  11. RANITIDINE TABLETS 300MG [Suspect]
     Active Substance: RANITIDINE
     Dosage: 1 DOSAGE FORM
     Route: 065
     Dates: start: 20150423
  12. SODIUM [Concomitant]
     Active Substance: SODIUM
     Dosage: 8 DOSAGE FORM, ONCE A DAY
     Route: 065

REACTIONS (14)
  - Rash macular [Recovered/Resolved]
  - Nasopharyngitis [Recovered/Resolved]
  - Anaphylactoid reaction [Recovered/Resolved]
  - Chills [Recovered/Resolved]
  - Throat tightness [Recovered/Resolved]
  - Flushing [Recovered/Resolved]
  - Dizziness [Recovered/Resolved]
  - Withdrawal syndrome [Recovered/Resolved]
  - Chest discomfort [Recovered/Resolved]
  - Malaise [Recovered/Resolved]
  - Rhinorrhoea [Recovered/Resolved]
  - Off label use [Unknown]
  - Abdominal pain [Recovered/Resolved]
  - Pruritus [Recovered/Resolved]

NARRATIVE: CASE EVENT DATE: 20150426
